FAERS Safety Report 5234948-5 (Version None)
Quarter: 2007Q1

REPORT INFORMATION
  Report Type: 
  Country: None (occurrence: None)
  Receive Date: 20070209
  Receipt Date: 20070117
  Transmission Date: 20070707
  Serious: Yes (Hospitalization)
  Sender: FDA-Public Use
  Company Number: JP-PFIZER INC-2007004915

PATIENT
  Age: 67 Year
  Sex: Male

DRUGS (5)
  1. LIPITOR [Suspect]
     Indication: HYPERLIPIDAEMIA
     Dosage: DAILY DOSE:10MG
     Route: 048
  2. URINORM [Suspect]
  3. NORVASC [Concomitant]
     Dosage: DAILY DOSE:5MG-FREQ:DAILY
  4. VALSARTAN [Concomitant]
     Dosage: DAILY DOSE:80MG-FREQ:DAILY
  5. URALYT [Concomitant]

REACTIONS (2)
  - HEPATITIS FULMINANT [None]
  - RHABDOMYOLYSIS [None]
